FAERS Safety Report 7645918-1 (Version None)
Quarter: 2011Q3

REPORT INFORMATION
  Report Type: 
  Country: None (occurrence: None)
  Receive Date: 20110729
  Receipt Date: 20110726
  Transmission Date: 20111222
  Serious: Yes (Hospitalization)
  Sender: FDA-Public Use
  Company Number: DE-MERCK-1107DEU00027

PATIENT
  Sex: Male

DRUGS (3)
  1. IODINE-131 [Concomitant]
     Indication: AUTOIMMUNE THYROIDITIS
     Route: 065
  2. ASPIRIN [Suspect]
     Route: 048
  3. JANUMET [Suspect]
     Indication: DIABETES MELLITUS
     Route: 048
     Dates: end: 20110101

REACTIONS (1)
  - PULMONARY HAEMORRHAGE [None]
